FAERS Safety Report 14961176 (Version 3)
Quarter: 2020Q3

REPORT INFORMATION
  Report Type: Report from Study
  Country: JP (occurrence: JP)
  Receive Date: 20180601
  Receipt Date: 20200926
  Transmission Date: 20201102
  Serious: Yes (Other)
  Sender: FDA-Public Use
  Company Number: JP-AMGEN-JPNCT2018041914

PATIENT
  Sex: Male
  Weight: 70.7 kg

DRUGS (27)
  1. CALCIUM LEVOFOLINATE [Concomitant]
     Active Substance: LEVOLEUCOVORIN CALCIUM
     Dosage: UNK UNK, Q2WK
     Route: 041
     Dates: start: 20180105, end: 20180807
  2. 5?FU [FLUOROURACIL] [Concomitant]
     Active Substance: FLUOROURACIL
     Dosage: 4250 MILLIGRAM, Q2WK
     Route: 041
     Dates: start: 20160825, end: 20161013
  3. 5?FU [FLUOROURACIL] [Concomitant]
     Active Substance: FLUOROURACIL
     Dosage: UNK
     Route: 041
     Dates: start: 20180821, end: 20181227
  4. OXALIPLATIN. [Concomitant]
     Active Substance: OXALIPLATIN
     Dosage: 50 MILLIGRAM/SQ. METER, Q2WK
     Route: 041
     Dates: start: 20180105, end: 20180807
  5. CALCIUM LEVOFOLINATE [Concomitant]
     Active Substance: LEVOLEUCOVORIN CALCIUM
     Dosage: UNK UNK, Q2WK
     Route: 041
     Dates: start: 20161110, end: 20171109
  6. 5?FU [FLUOROURACIL] [Concomitant]
     Active Substance: FLUOROURACIL
     Dosage: UNK
     Route: 041
     Dates: start: 20190205
  7. PANITUMUMAB [Suspect]
     Active Substance: PANITUMUMAB
     Dosage: 3.6 MILLIGRAM/KILOGRAM, Q2WK
     Route: 041
     Dates: start: 20180105, end: 20180807
  8. OXALIPLATIN. [Concomitant]
     Active Substance: OXALIPLATIN
     Indication: COLON CANCER
     Dosage: 150 MILLIGRAM, Q2WK
     Route: 041
     Dates: start: 20160825, end: 20161013
  9. OXALIPLATIN. [Concomitant]
     Active Substance: OXALIPLATIN
     Dosage: UNK
     Route: 041
     Dates: start: 20180821, end: 20181227
  10. 5?FU [FLUOROURACIL] [Concomitant]
     Active Substance: FLUOROURACIL
     Indication: COLON CANCER
     Dosage: 700 MILLIGRAM, Q2WK
     Route: 040
     Dates: start: 20160825, end: 20161013
  11. 5?FU [FLUOROURACIL] [Concomitant]
     Active Substance: FLUOROURACIL
     Dosage: UNK
     Route: 040
     Dates: start: 20180821, end: 20181227
  12. PANITUMUMAB [Suspect]
     Active Substance: PANITUMUMAB
     Dosage: 4.8 MILLIGRAM/KILOGRAM, Q2WK
     Route: 041
     Dates: start: 20161110, end: 20170413
  13. PANITUMUMAB [Suspect]
     Active Substance: PANITUMUMAB
     Dosage: 3.6 MILLIGRAM/KILOGRAM, Q2WK
     Route: 041
     Dates: start: 20170427, end: 20171109
  14. OXALIPLATIN. [Concomitant]
     Active Substance: OXALIPLATIN
     Dosage: 50 MILLIGRAM/SQ. METER, Q2WK
     Route: 041
     Dates: start: 20171207, end: 20171207
  15. 5?FU [FLUOROURACIL] [Concomitant]
     Active Substance: FLUOROURACIL
     Dosage: 200 MILLIGRAM/SQ. METER, Q2WK
     Route: 040
     Dates: start: 20161110, end: 20170413
  16. 5?FU [FLUOROURACIL] [Concomitant]
     Active Substance: FLUOROURACIL
     Dosage: 1600 MILLIGRAM/SQ. METER, Q2WK
     Route: 041
     Dates: start: 20180105, end: 20180807
  17. 5?FU [FLUOROURACIL] [Concomitant]
     Active Substance: FLUOROURACIL
     Dosage: UNK
     Route: 040
     Dates: start: 20190205
  18. PANITUMUMAB [Suspect]
     Active Substance: PANITUMUMAB
     Indication: COLON CANCER
     Dosage: 420 MILLIGRAM, Q2WK
     Route: 041
     Dates: start: 20160825, end: 20161013
  19. PANITUMUMAB [Suspect]
     Active Substance: PANITUMUMAB
     Dosage: 3.6 MILLIGRAM/KILOGRAM, Q2WK
     Route: 041
     Dates: start: 20171207, end: 20171207
  20. OXALIPLATIN. [Concomitant]
     Active Substance: OXALIPLATIN
     Dosage: 50 MILLIGRAM/SQ. METER, Q2WK
     Route: 041
     Dates: start: 20170427, end: 20171109
  21. 5?FU [FLUOROURACIL] [Concomitant]
     Active Substance: FLUOROURACIL
     Dosage: 1600 MILLIGRAM/SQ. METER, Q2WK
     Route: 041
     Dates: start: 20170427, end: 20171109
  22. CALCIUM LEVOFOLINATE [Concomitant]
     Active Substance: LEVOLEUCOVORIN CALCIUM
     Indication: COLON CANCER
     Dosage: 350 MILLIGRAM, Q2WK
     Route: 041
     Dates: start: 20160825, end: 20161013
  23. 5?FU [FLUOROURACIL] [Concomitant]
     Active Substance: FLUOROURACIL
     Dosage: 1600 MILLIGRAM/SQ. METER, Q2WK
     Route: 041
     Dates: start: 20171207, end: 20171207
  24. PANITUMUMAB [Suspect]
     Active Substance: PANITUMUMAB
     Dosage: UNK
     Route: 041
     Dates: start: 20180821, end: 20181227
  25. OXALIPLATIN. [Concomitant]
     Active Substance: OXALIPLATIN
     Dosage: 65 MILLIGRAM/SQ. METER, Q2WK
     Route: 041
     Dates: start: 20161110, end: 20170413
  26. CALCIUM LEVOFOLINATE [Concomitant]
     Active Substance: LEVOLEUCOVORIN CALCIUM
     Dosage: UNK UNK, Q2WK
     Route: 041
     Dates: start: 20171207, end: 20171207
  27. 5?FU [FLUOROURACIL] [Concomitant]
     Active Substance: FLUOROURACIL
     Dosage: 2000 MILLIGRAM/SQ. METER, Q2WK
     Route: 041
     Dates: start: 20161110, end: 20170413

REACTIONS (4)
  - Neuropathy peripheral [Not Recovered/Not Resolved]
  - Dermatitis [Not Recovered/Not Resolved]
  - Neutrophil count decreased [Recovered/Resolved]
  - Fatigue [Not Recovered/Not Resolved]
